FAERS Safety Report 9893956 (Version 1)
Quarter: 2014Q1

REPORT INFORMATION
  Report Type: Spontaneous
  Country: US (occurrence: US)
  Receive Date: 20140213
  Receipt Date: 20140213
  Transmission Date: 20141002
  Serious: No
  Sender: FDA-Public Use
  Company Number: US-BAYER-2014-022553

PATIENT
  Age: 30 Year
  Sex: Female
  Weight: 67 kg

DRUGS (4)
  1. ALEVE CAPLET [Suspect]
     Route: 048
  2. ALEVE CAPLET [Suspect]
     Dosage: 3 DF, ONCE
     Route: 048
     Dates: start: 20140210, end: 20140210
  3. SYNTHROID [Concomitant]
  4. VALTREX [Concomitant]
     Dosage: 1 UNIT
     Dates: start: 20140210

REACTIONS (2)
  - Abdominal pain upper [Not Recovered/Not Resolved]
  - Inappropriate schedule of drug administration [None]
